FAERS Safety Report 8963519 (Version 1)
Quarter: 2012Q4

REPORT INFORMATION
  Report Type: 
  Country: GB (occurrence: GB)
  Receive Date: 20121214
  Receipt Date: 20121214
  Transmission Date: 20130627
  Serious: Yes (Other)
  Sender: FDA-Public Use
  Company Number: GB-BRISTOL-MYERS SQUIBB COMPANY-17176108

PATIENT
  Age: 71 Year
  Sex: Female
  Weight: 100 kg

DRUGS (8)
  1. ONGLYZA TABS 5 MG [Suspect]
     Indication: DIABETES MELLITUS
     Dosage: Cumulaqtive dose:739.79 units NOS
     Dates: start: 20120320, end: 20120816
  2. CO-CODAMOL [Suspect]
     Dosage: 8/500
  3. SIMVASTATIN [Suspect]
     Dosage: tabs
  4. RAMIPRIL [Concomitant]
     Dosage: CaPS
  5. METFORMIN HCL [Concomitant]
     Dosage: tabs
  6. GLICLAZIDE [Concomitant]
     Dosage: tabs
  7. FUROSEMIDE [Concomitant]
     Dosage: tabs
  8. LIRAGLUTIDE [Concomitant]
     Dosage: Sol for inj

REACTIONS (1)
  - Liver function test abnormal [Recovered/Resolved]
